FAERS Safety Report 13531643 (Version 2)
Quarter: 2017Q2

REPORT INFORMATION
  Report Type: Report from Study
  Country: BR (occurrence: BR)
  Receive Date: 20170510
  Receipt Date: 20170517
  Transmission Date: 20170830
  Serious: Yes (Other)
  Sender: FDA-Public Use
  Company Number: PHHY2017BR067910

PATIENT
  Sex: Female
  Weight: 60 kg

DRUGS (3)
  1. EXELON PATCH [Suspect]
     Active Substance: RIVASTIGMINE
     Dosage: 0.5 DF (9.5 MG, QD PATCH 10 (CM2))
     Route: 062
  2. EXELON PATCH [Suspect]
     Active Substance: RIVASTIGMINE
     Indication: DEMENTIA ALZHEIMER^S TYPE
     Dosage: 4.6 MG, QD PATCH 5 (CM2)
     Route: 062
  3. EXELON PATCH [Suspect]
     Active Substance: RIVASTIGMINE
     Dosage: 9.5 MG, QD PATCH 10 (CM2)
     Route: 062

REACTIONS (7)
  - Speech disorder [Recovering/Resolving]
  - Malaise [Recovering/Resolving]
  - Abasia [Recovering/Resolving]
  - Drug prescribing error [Not Recovered/Not Resolved]
  - Diplegia [Recovering/Resolving]
  - Feeling of despair [Unknown]
  - Wrong technique in product usage process [Not Recovered/Not Resolved]
